FAERS Safety Report 7623820-9 (Version None)
Quarter: 2011Q3

REPORT INFORMATION
  Report Type: 
  Country: None (occurrence: None)
  Receive Date: 20110720
  Receipt Date: 20110713
  Transmission Date: 20111222
  Serious: No
  Sender: FDA-Public Use
  Company Number: US-PFIZER INC-2011158816

PATIENT
  Sex: Female
  Weight: 55.329 kg

DRUGS (4)
  1. ASPIRIN [Concomitant]
     Dosage: 81 MG, 1X/DAY
     Route: 048
  2. FLAGYL [Suspect]
     Dosage: UNK
     Dates: start: 20110514, end: 20110524
  3. LIPITOR [Concomitant]
     Dosage: 10 MG, UNK
  4. ACYCLOVIR [Concomitant]
     Dosage: 200 MG, UNK
     Route: 048

REACTIONS (1)
  - DIARRHOEA [None]
